FAERS Safety Report 10399828 (Version 1)
Quarter: 2014Q3

REPORT INFORMATION
  Report Type: Spontaneous
  Country: US (occurrence: US)
  Receive Date: 20140821
  Receipt Date: 20140821
  Transmission Date: 20150326
  Serious: No
  Sender: FDA-Public Use
  Company Number: US-ENDO PHARMACEUTICALS INC.-OXAT20140011

PATIENT
  Age: 61 Year
  Sex: Female

DRUGS (2)
  1. OXYCODONE/ACETAMINOPHEN [Concomitant]
     Active Substance: ACETAMINOPHEN\OXYCODONE\OXYCODONE HYDROCHLORIDE
     Indication: PRODUCT USED FOR UNKNOWN INDICATION
     Dosage: 5/325 MG
     Route: 048
     Dates: end: 201403
  2. OXYCODONE/ACETAMINOPHEN 5MG/325MG TABLETS [Suspect]
     Active Substance: ACETAMINOPHEN\OXYCODONE\OXYCODONE HYDROCHLORIDE
     Indication: PRODUCT USED FOR UNKNOWN INDICATION
     Dosage: 5/325 MG
     Route: 048
     Dates: start: 201403, end: 201403

REACTIONS (3)
  - Product substitution issue [None]
  - Drug effect decreased [Recovered/Resolved]
  - Product quality issue [None]

NARRATIVE: CASE EVENT DATE: 201403
